FAERS Safety Report 6881417-2 (Version None)
Quarter: 2010Q3

REPORT INFORMATION
  Report Type: 
  Country: None (occurrence: None)
  Receive Date: 20100728
  Receipt Date: 20100728
  Transmission Date: 20110219
  Serious: Yes (Life-Threatening)
  Sender: FDA-Public Use
  Company Number: None

PATIENT
  Age: 74 Year
  Sex: Male
  Weight: 83.5 kg

DRUGS (1)
  1. REVLIMID [Suspect]
     Indication: MYELODYSPLASTIC SYNDROME
     Dosage: 5MG ALTERNATE DAY PO C#3
     Route: 048
     Dates: start: 20100714

REACTIONS (3)
  - HAEMOGLOBIN DECREASED [None]
  - HICCUPS [None]
  - PLATELET COUNT DECREASED [None]
